FAERS Safety Report 6232423-2 (Version None)
Quarter: 2009Q2

REPORT INFORMATION
  Report Type: 
  Country: None (occurrence: None)
  Receive Date: 20090615
  Receipt Date: 20090615
  Transmission Date: 20091009
  Serious: Yes (Death, Life-Threatening, Hospitalization, Disabling, Other)
  Sender: FDA-Public Use
  Company Number: None

PATIENT
  Sex: Male
  Weight: 83.9154 kg

DRUGS (2)
  1. PREDNISONE [Suspect]
     Indication: TEMPORAL ARTERITIS
     Dosage: 1-50 MG MORNING; 1-50 MG EVENING
     Dates: start: 20080707
  2. PREDNISONE [Suspect]
     Indication: TEMPORAL ARTERITIS
     Dosage: 1-50 MG MORNING; 1-50 MG EVENING
     Dates: start: 20081025

REACTIONS (10)
  - ALOPECIA [None]
  - BLISTER [None]
  - CARDIAC ARREST [None]
  - CONFUSIONAL STATE [None]
  - CONSTIPATION [None]
  - LOSS OF CONSCIOUSNESS [None]
  - MULTI-ORGAN FAILURE [None]
  - OBSTRUCTION [None]
  - OESOPHAGEAL ULCER HAEMORRHAGE [None]
  - RENAL FAILURE [None]
